FAERS Safety Report 8065155-9 (Version None)
Quarter: 2012Q1

REPORT INFORMATION
  Report Type: 
  Country: None (occurrence: None)
  Receive Date: 20120117
  Receipt Date: 20120110
  Transmission Date: 20120608
  Serious: Yes (Death)
  Sender: FDA-Public Use
  Company Number: 1000026991

PATIENT
  Age: 87 Year
  Sex: Female

DRUGS (8)
  1. NITROGLYCERIN [Suspect]
  2. COLCHICINE [Suspect]
  3. METOPROLOL SUCCINATE EXTENDED RELEASE [Suspect]
  4. HYDRALAZINE HCL [Suspect]
  5. LEVOTHROID [Suspect]
  6. ZOLPIDEM [Suspect]
  7. ALPRAZOLAM [Suspect]
  8. ACETAMINOPHEN/PROPOXYPHENE (ACETAMINOPHEN, PROPOXYPHENE) [Suspect]

REACTIONS (3)
  - COMPLETED SUICIDE [None]
  - RESPIRATORY ARREST [None]
  - CARDIAC ARREST [None]
